FAERS Safety Report 24551245 (Version 4)
Quarter: 2024Q4

REPORT INFORMATION
  Report Type: Report from Study
  Country: CA (occurrence: CA)
  Receive Date: 20241025
  Receipt Date: 20241119
  Transmission Date: 20250114
  Serious: Yes (Hospitalization, Other)
  Sender: HLS THERAPEUTICS
  Company Number: CA-HLS-202006818

PATIENT
  Age: 25 Year
  Sex: Male

DRUGS (8)
  1. CLOZARIL [Suspect]
     Active Substance: CLOZAPINE
     Indication: Schizoaffective disorder
     Route: 048
     Dates: end: 20201216
  2. CLOZARIL [Suspect]
     Active Substance: CLOZAPINE
     Indication: Schizoaffective disorder
     Route: 048
     Dates: start: 20201201
  3. CLOZARIL [Suspect]
     Active Substance: CLOZAPINE
     Indication: Schizoaffective disorder
     Dosage: 75MG TWICE A DAY?(INCREASED BY 25MG EVERY 2 DAYS)
     Route: 048
  4. LEVOTHYROXINE [Concomitant]
     Active Substance: LEVOTHYROXINE
     Indication: Product used for unknown indication
     Route: 065
  5. LORAZEPAM [Concomitant]
     Active Substance: LORAZEPAM
     Indication: Product used for unknown indication
     Dosage: 2MG AT NIGHT AS NEEDED
     Route: 065
  6. LITHIUM [Concomitant]
     Active Substance: LITHIUM
     Indication: Product used for unknown indication
     Dosage: 1350MG AT NIGHT
     Route: 065
  7. LOXAPINE [Concomitant]
     Active Substance: LOXAPINE
     Indication: Product used for unknown indication
     Dosage: 75MG AT NIGHT
     Route: 065
  8. OLANZAPINE [Concomitant]
     Active Substance: OLANZAPINE
     Indication: Psychotic disorder
     Dosage: 50MG AT NIGHT
     Route: 048

REACTIONS (12)
  - Agitation [Recovered/Resolved]
  - C-reactive protein increased [Unknown]
  - Irritability [Recovered/Resolved]
  - Antipsychotic drug level below therapeutic [Recovered/Resolved]
  - Mental impairment [Unknown]
  - Mitral valve incompetence [Unknown]
  - Myopericarditis [Unknown]
  - Delusion [Recovered/Resolved]
  - Persecutory delusion [Recovered/Resolved]
  - Myocarditis [Unknown]
  - Tricuspid valve incompetence [Unknown]
  - Troponin increased [Unknown]

NARRATIVE: CASE EVENT DATE: 20201216
